FAERS Safety Report 16304345 (Version 11)
Quarter: 2025Q1

REPORT INFORMATION
  Report Type: Spontaneous
  Country: US (occurrence: US)
  Receive Date: 20190513
  Receipt Date: 20250224
  Transmission Date: 20250408
  Serious: Yes (Other)
  Sender: PFIZER
  Company Number: US-PFIZER INC-2019198117

PATIENT
  Age: 63 Year
  Sex: Male

DRUGS (12)
  1. XELJANZ XR [Suspect]
     Active Substance: TOFACITINIB CITRATE
     Indication: Rheumatoid arthritis
     Dosage: 11 MG, 1X/DAY
     Route: 048
  2. ALPRAZOLAM [Concomitant]
     Active Substance: ALPRAZOLAM
     Dosage: 0.25 MG, WEEKLY ON TUESDAY
  3. ENBREL [Concomitant]
     Active Substance: ETANERCEPT
     Dates: start: 201812
  4. FOLIC ACID [Concomitant]
     Active Substance: FOLIC ACID
  5. HUMIRA [Concomitant]
     Active Substance: ADALIMUMAB
     Dates: start: 201812
  6. ACETYLCARNITINE/MELATONIN/NICOTINAMIDE/THIOCTIC ACID [Concomitant]
     Dosage: 10 MG, ALTERNATE DAY (5 MG X 2 EVERY OTHER D)
  7. METHOTREXATE [Concomitant]
     Active Substance: METHOTREXATE
  8. OXYCODONE HYDROCHLORIDE [Concomitant]
     Active Substance: OXYCODONE HYDROCHLORIDE
     Dosage: 15 MG, 2X/DAY
  9. MORPHINE SULFATE [Concomitant]
     Active Substance: MORPHINE SULFATE
  10. PILOCARPINE HYDROCHLORIDE [Concomitant]
     Active Substance: PILOCARPINE HYDROCHLORIDE
  11. PREDNISONE [Concomitant]
     Active Substance: PREDNISONE
     Dosage: 2.5 MG, EVERY OTHER NIGHT
  12. TRAZODONE HCL [Concomitant]
     Active Substance: TRAZODONE HYDROCHLORIDE

REACTIONS (5)
  - Rheumatoid arthritis [Unknown]
  - Knee operation [Unknown]
  - Skin discolouration [Recovering/Resolving]
  - Purpura [Recovering/Resolving]
  - Contusion [Unknown]

NARRATIVE: CASE EVENT DATE: 20190101
